FAERS Safety Report 17445304 (Version 3)
Quarter: 2020Q2

REPORT INFORMATION
  Report Type: Spontaneous
  Country: US (occurrence: US)
  Receive Date: 20200221
  Receipt Date: 20200414
  Transmission Date: 20200713
  Serious: Yes (Hospitalization, Other)
  Sender: FDA-Public Use
  Company Number: US-JNJFOC-20200221574

PATIENT
  Age: 69 Year
  Sex: Female

DRUGS (3)
  1. HUMIRA [Suspect]
     Active Substance: ADALIMUMAB
     Indication: CROHN^S DISEASE
     Route: 058
  2. RIVAROXABAN [Suspect]
     Active Substance: RIVAROXABAN
     Indication: PRODUCT USED FOR UNKNOWN INDICATION
     Route: 048
  3. HUMIRA [Suspect]
     Active Substance: ADALIMUMAB
     Indication: PSORIASIS

REACTIONS (10)
  - Blood magnesium decreased [Unknown]
  - Crohn^s disease [Recovered/Resolved]
  - Device breakage [Unknown]
  - Deep vein thrombosis [Unknown]
  - Gastrointestinal haemorrhage [Recovered/Resolved]
  - Nasopharyngitis [Unknown]
  - Atrial fibrillation [Unknown]
  - Bronchitis [Recovering/Resolving]
  - Medical device pain [Unknown]
  - Mobility decreased [Unknown]

NARRATIVE: CASE EVENT DATE: 2019
